FAERS Safety Report 10535409 (Version 2)
Quarter: 2014Q4

REPORT INFORMATION
  Report Type: Spontaneous
  Country: US (occurrence: US)
  Receive Date: 20141022
  Receipt Date: 20141024
  Transmission Date: 20150529
  Serious: No
  Sender: FDA-Public Use
  Company Number: US-ASTRAZENECA-2014SE20722

PATIENT
  Age: 61 Year
  Sex: Female
  Weight: 72.6 kg

DRUGS (15)
  1. PANTOPRAZOLE SODIUM [Concomitant]
     Active Substance: PANTOPRAZOLE SODIUM
     Dosage: ONE TABLET DAILY
     Route: 048
  2. CRESTOR [Suspect]
     Active Substance: ROSUVASTATIN CALCIUM
     Indication: BLOOD CHOLESTEROL INCREASED
     Route: 048
     Dates: start: 20130513, end: 20130710
  3. COQ10 [Concomitant]
     Active Substance: UBIDECARENONE
     Indication: SUPPLEMENTATION THERAPY
  4. ISOMETHEPTENE-APAP-DICHLORAL [Concomitant]
     Dosage: 65325100 MG, TWO CAPSULE DAILY
     Route: 048
  5. LOSARTAN POTASSIUM. [Concomitant]
     Active Substance: LOSARTAN POTASSIUM
     Indication: HYPERTENSION
     Dosage: ONE TABLET, ONCE DAILY
     Route: 048
  6. CALCIUM WITH VITAMIN D [Concomitant]
     Active Substance: CALCIUM\VITAMIN D
     Indication: VITAMIN D DEFICIENCY
  7. IMITREX [Concomitant]
     Active Substance: SUMATRIPTAN\SUMATRIPTAN SUCCINATE
     Dosage: ONE TABLET AS DIRECTED
     Route: 048
  8. PIROXICAM. [Concomitant]
     Active Substance: PIROXICAM
  9. CRESTOR [Suspect]
     Active Substance: ROSUVASTATIN CALCIUM
     Indication: BLOOD CHOLESTEROL INCREASED
     Route: 048
     Dates: start: 20130710, end: 20140319
  10. FELDENE [Concomitant]
     Active Substance: PIROXICAM
     Indication: ARTHRITIS
  11. METFORMIN [Concomitant]
     Active Substance: METFORMIN HYDROCHLORIDE
     Indication: GLUCOSE TOLERANCE IMPAIRED
  12. FLONASE [Concomitant]
     Active Substance: FLUTICASONE PROPIONATE
     Dosage: 50 MCG, ONE TO TWO SPRAYS EACH NOSTRIL DAILY
  13. ASPIRIN. [Concomitant]
     Active Substance: ASPIRIN
     Dosage: TAKE ONE TABLET BY MOUTH DAILY
     Route: 048
  14. METFORMIN HCL [Concomitant]
     Active Substance: METFORMIN HYDROCHLORIDE
     Dosage: ONE DAILY IN MORNING
  15. CALCIUM D [Concomitant]
     Active Substance: CALCIUM\VITAMIN D
     Dosage: DAILY
     Route: 048

REACTIONS (10)
  - Blood creatinine increased [Unknown]
  - Blood cholesterol increased [Unknown]
  - Memory impairment [Not Recovered/Not Resolved]
  - Blood triglycerides increased [Unknown]
  - Drug ineffective [Unknown]
  - Myalgia [Not Recovered/Not Resolved]
  - Blood glucose increased [Unknown]
  - Bradyphrenia [Not Recovered/Not Resolved]
  - Fatigue [Not Recovered/Not Resolved]
  - Insomnia [Not Recovered/Not Resolved]

NARRATIVE: CASE EVENT DATE: 20140303
